FAERS Safety Report 20430284 (Version 2)
Quarter: 2024Q3

REPORT INFORMATION
  Report Type: Report from Study
  Country: FR (occurrence: FR)
  Receive Date: 20220204
  Receipt Date: 20240823
  Transmission Date: 20241017
  Serious: Yes (Other)
  Sender: SERVIER
  Company Number: FR-SERVIER-S20005376

PATIENT

DRUGS (9)
  1. PEGASPARGASE [Suspect]
     Active Substance: PEGASPARGASE
     Indication: Acute lymphocytic leukaemia
     Dosage: 2050 IU  D6
     Route: 042
     Dates: start: 20200502, end: 20200502
  2. CYTARABINE [Suspect]
     Active Substance: CYTARABINE
     Indication: Acute lymphocytic leukaemia
     Dosage: 1650 MG  ON D1, D2
     Route: 042
     Dates: start: 20200427, end: 20200428
  3. CYTARABINE [Suspect]
     Active Substance: CYTARABINE
     Dosage: 30 MG, ON D5
     Route: 037
     Dates: start: 20200430, end: 20200430
  4. MITOXANTRONE [Suspect]
     Active Substance: MITOXANTRONE HYDROCHLORIDE
     Indication: Acute lymphocytic leukaemia
     Dosage: 6 MG ON D3, D4
     Route: 042
     Dates: start: 20200428, end: 20200429
  5. ETOPOSIDE [Suspect]
     Active Substance: ETOPOSIDE
     Indication: Acute lymphocytic leukaemia
     Dosage: 124 MG  ON D3, D5
     Route: 042
     Dates: start: 20200428, end: 20200430
  6. HYDROCORTISONE [Suspect]
     Active Substance: HYDROCORTISONE\HYDROCORTISONE ACETATE
     Indication: Acute lymphocytic leukaemia
     Dosage: 15 MG  D5
     Route: 037
     Dates: start: 20200430, end: 20200430
  7. METHOTREXATE [Suspect]
     Active Substance: METHOTREXATE
     Indication: Acute lymphocytic leukaemia
     Dosage: 12 MG ON D5
     Route: 037
     Dates: start: 20200430, end: 20200430
  8. DEXAMETHASONE [Suspect]
     Active Substance: DEXAMETHASONE
     Indication: Acute lymphocytic leukaemia
     Dosage: 16 MG D1-D5
     Route: 048
     Dates: start: 20200427, end: 20200430
  9. DEXAMETHASONE [Suspect]
     Active Substance: DEXAMETHASONE
     Dosage: 8 MG ON D6
     Route: 048
     Dates: start: 20200501, end: 20200501

REACTIONS (3)
  - Lipase increased [Recovered/Resolved]
  - Thrombocytopenia [Recovered/Resolved]
  - Sepsis [Recovered/Resolved]

NARRATIVE: CASE EVENT DATE: 20200510
